FAERS Safety Report 10573361 (Version 1)
Quarter: 2014Q4

REPORT INFORMATION
  Report Type: Spontaneous
  Country: US (occurrence: None)
  Receive Date: 20141030
  Receipt Date: 20141030
  Transmission Date: 20150529
  Serious: Yes (Hospitalization, Other)
  Sender: FDA-Public Use
  Company Number: PHEH2014US010788

PATIENT
  Age: 68 Year
  Sex: Female

DRUGS (4)
  1. TRILEPTAL [Suspect]
     Active Substance: OXCARBAZEPINE
     Indication: TRIGEMINAL NEURALGIA
     Dosage: 300 MG, 5QD
     Dates: start: 2006
  2. COZAAR [Concomitant]
     Active Substance: LOSARTAN POTASSIUM
  3. PRAVACHOL (PRAVASTATIN SODIUM) [Concomitant]
  4. COREG [Concomitant]
     Active Substance: CARVEDILOL

REACTIONS (2)
  - Dizziness [None]
  - Blood sodium decreased [None]

NARRATIVE: CASE EVENT DATE: 201405
